FAERS Safety Report 21486403 (Version 1)
Quarter: 2022Q4

REPORT INFORMATION
  Report Type: Report from Study
  Country: US (occurrence: US)
  Receive Date: 20221020
  Receipt Date: 20221020
  Transmission Date: 20230113
  Serious: Yes (Other)
  Sender: FDA-Public Use
  Company Number: US-MYLANLABS-2022M1115133

PATIENT
  Age: 76 Year
  Sex: Male

DRUGS (4)
  1. PREDNISONE [Suspect]
     Active Substance: PREDNISONE
     Indication: Neutropenia
     Dosage: 1 MILLIGRAM/KILOGRAM
     Route: 065
  2. SOLU-MEDROL [Suspect]
     Active Substance: METHYLPREDNISOLONE SODIUM SUCCINATE
     Indication: Neutropenia
     Dosage: 125 MILLIGRAM, BID
     Route: 065
  3. FILGRASTIM [Suspect]
     Active Substance: FILGRASTIM
     Indication: Neutropenia
     Dosage: 480 MICROGRAM, QD
     Route: 058
  4. IMMUNE GLOBULIN NOS [Suspect]
     Active Substance: IMMUNE GLOBULIN NOS
     Indication: Neutropenia
     Dosage: 500 MILLIGRAM/KILOGRAM (RECEIVED 4 TOTAL DOSES)
     Route: 065

REACTIONS (1)
  - Drug ineffective [Unknown]
